FAERS Safety Report 15591083 (Version 2)
Quarter: 2019Q2

REPORT INFORMATION
  Report Type: Spontaneous
  Country: US (occurrence: US)
  Receive Date: 20181106
  Receipt Date: 20190410
  Transmission Date: 20190711
  Serious: Yes (Hospitalization, Other)
  Sender: FDA-Public Use
  Company Number: US-MALLINCKRODT-T201804738

PATIENT
  Sex: Male

DRUGS (3)
  1. H.P. ACTHAR [Suspect]
     Active Substance: CORTICOTROPIN
     Indication: CHRONIC KIDNEY DISEASE
  2. H.P. ACTHAR [Suspect]
     Active Substance: CORTICOTROPIN
     Indication: GLOMERULONEPHRITIS MEMBRANOUS
     Dosage: 40 UNITS / 0.5 ML, 2 TIMES PER WEEK (MONDAY/THURSDAY)
     Route: 058
  3. H.P. ACTHAR [Suspect]
     Active Substance: CORTICOTROPIN
     Indication: NEPHROTIC SYNDROME
     Dosage: 40 U-80 U (0.5 ML), TWICE WEEKLY
     Route: 058
     Dates: start: 20170301

REACTIONS (7)
  - Stent placement [Recovering/Resolving]
  - Myocardial infarction [Recovering/Resolving]
  - Nasal injury [Unknown]
  - Fall [Unknown]
  - Loss of consciousness [Unknown]
  - Carbon dioxide increased [Unknown]
  - Product dose omission [Unknown]
